FAERS Safety Report 9036286 (Version 1)
Quarter: 2013Q1

REPORT INFORMATION
  Report Type: Spontaneous
  Country: US (occurrence: None)
  Receive Date: 20130117
  Receipt Date: 20130117
  Transmission Date: 20140127
  Serious: No
  Sender: FDA-Public Use
  Company Number: None

PATIENT
  Age: 46 Year
  Sex: Female
  Weight: 83.2 kg

DRUGS (2)
  1. SINGULAIR 5MG [Suspect]
     Route: 048
     Dates: start: 20121029, end: 20121119
  2. SINGULAIR [Suspect]
     Route: 048
     Dates: start: 20121125, end: 20121215

REACTIONS (1)
  - Drug ineffective [None]
